FAERS Safety Report 11320418 (Version 1)
Quarter: 2015Q3

REPORT INFORMATION
  Report Type: Spontaneous
  Country: ES (occurrence: ES)
  Receive Date: 20150729
  Receipt Date: 20150729
  Transmission Date: 20151125
  Serious: Yes (Hospitalization)
  Sender: FDA-Public Use
  Company Number: PHHY2015ES085334

PATIENT
  Age: 21 Year
  Sex: Female

DRUGS (1)
  1. LIDOCAINE, PRILOCAINE [Suspect]
     Active Substance: LIDOCAINE\PRILOCAINE
     Indication: DEPILATION
     Route: 061

REACTIONS (8)
  - Methaemoglobinaemia [Unknown]
  - Headache [Recovering/Resolving]
  - Respiratory distress [Recovering/Resolving]
  - Pleuritic pain [Recovering/Resolving]
  - Dizziness [Recovering/Resolving]
  - Tachycardia [Recovering/Resolving]
  - Cyanosis [Recovered/Resolved]
  - Tachypnoea [Recovering/Resolving]
